FAERS Safety Report 9621044 (Version 2)
Quarter: 2013Q4

REPORT INFORMATION
  Report Type: Report from Study
  Country: TR (occurrence: TR)
  Receive Date: 20131015
  Receipt Date: 20131015
  Transmission Date: 20140711
  Serious: Yes (Other)
  Sender: FDA-Public Use
  Company Number: PHHY2013TR105559

PATIENT
  Age: 52 Year
  Sex: Female
  Weight: 58 kg

DRUGS (2)
  1. GILENYA [Suspect]
     Indication: MULTIPLE SCLEROSIS
     Dosage: 0.5 MG, QD
     Dates: start: 20130731
  2. EUTHYROX [Concomitant]
     Indication: HYPOTHYROIDISM
     Dates: start: 2001

REACTIONS (7)
  - Blood pressure decreased [Unknown]
  - Musculoskeletal stiffness [Recovered/Resolved]
  - Miliaria [Recovered/Resolved]
  - Local swelling [Recovered/Resolved]
  - Palpitations [Recovered/Resolved]
  - Paraesthesia [Recovered/Resolved]
  - Headache [Recovered/Resolved]
